FAERS Safety Report 7925065 (Version 2)
Quarter: 2014Q2

REPORT INFORMATION
  Report Type: Report from Study
  Country: US (occurrence: US)
  Receive Date: 20110502
  Receipt Date: 20140510
  Transmission Date: 20141212
  Serious: No
  Sender: FDA-Public Use
  Company Number: US-ASTRAZENECA-2010SE14697

PATIENT
  Age: 52 Year
  Sex: Female
  Weight: 81.6 kg

DRUGS (4)
  1. NEXIUM [Suspect]
     Indication: DYSPEPSIA
     Route: 048
     Dates: start: 2009
  2. NEXIUM [Suspect]
     Indication: GASTROOESOPHAGEAL REFLUX DISEASE
     Route: 048
     Dates: start: 2009
  3. PRILOSEC OTC [Suspect]
     Route: 048
  4. CRESTOR [Suspect]
     Indication: BLOOD CHOLESTEROL INCREASED
     Route: 048
     Dates: start: 2013

REACTIONS (8)
  - Dyspepsia [Unknown]
  - Hernia [Not Recovered/Not Resolved]
  - Hot flush [Not Recovered/Not Resolved]
  - Body height increased [Not Recovered/Not Resolved]
  - Waist circumference increased [Unknown]
  - Feeling abnormal [Unknown]
  - Drug dose omission [Not Recovered/Not Resolved]
  - Drug ineffective [Unknown]
